FAERS Safety Report 6086059-7 (Version None)
Quarter: 2009Q1

REPORT INFORMATION
  Report Type: 
  Country: None (occurrence: None)
  Receive Date: 20090220
  Receipt Date: 20090209
  Transmission Date: 20090719
  Serious: Yes (Hospitalization)
  Sender: FDA-Public Use
  Company Number: CA-JNJFOC-20090202660

PATIENT
  Sex: Female
  Weight: 77.2 kg

DRUGS (13)
  1. REMICADE [Suspect]
     Route: 042
  2. REMICADE [Suspect]
     Indication: RHEUMATOID ARTHRITIS
     Route: 042
  3. CALTRATE WITH VITAMIN D [Concomitant]
     Indication: NUTRITIONAL SUPPORT
     Route: 048
  4. TRIAMZIDE [Concomitant]
     Indication: BLOOD PRESSURE
     Route: 048
  5. QUININE [Concomitant]
     Indication: MUSCLE SPASMS
     Route: 048
  6. CLONAZEPAM [Concomitant]
     Indication: SLEEP DISORDER
     Route: 048
  7. ALENDRONATE SODIUM [Concomitant]
     Indication: OSTEOPOROSIS PROPHYLAXIS
     Route: 048
  8. FOLIC ACID [Concomitant]
     Indication: PROPHYLAXIS
     Route: 048
  9. SYNTHROID [Concomitant]
     Indication: HYPOTHYROIDISM
     Route: 048
  10. EFFEXOR [Concomitant]
     Indication: DEPRESSION
     Route: 048
  11. NEXIUM [Concomitant]
     Indication: DYSPEPSIA
     Route: 048
  12. METHOTREXATE [Concomitant]
     Indication: RHEUMATOID ARTHRITIS
     Route: 048
  13. MEDROL [Concomitant]
     Indication: RHEUMATOID ARTHRITIS
     Route: 048

REACTIONS (1)
  - ARTERIAL OCCLUSIVE DISEASE [None]
